FAERS Safety Report 8574908-X (Version None)
Quarter: 2012Q3

REPORT INFORMATION
  Report Type: 
  Country: None (occurrence: None)
  Receive Date: 20120807
  Receipt Date: 20120727
  Transmission Date: 20120928
  Serious: Yes (Hospitalization)
  Sender: FDA-Public Use
  Company Number: KR-SANOFI-AVENTIS-2012SA054177

PATIENT
  Age: 61 Year
  Sex: Male
  Weight: 75 kg

DRUGS (10)
  1. DOXIUM [Concomitant]
     Indication: DIABETIC RETINOPATHY
     Dates: start: 20040120, end: 20120714
  2. LERCANIDIPINE [Concomitant]
     Indication: HYPERTENSION
     Dates: start: 20051020, end: 20120714
  3. METFORMIN HYDROCHLORIDE [Concomitant]
     Dates: start: 20091203
  4. ASPIRIN [Concomitant]
     Dates: start: 20010510, end: 20120714
  5. LANTUS [Suspect]
     Route: 058
     Dates: start: 20120307, end: 20120712
  6. INSULIN LISPRO [Suspect]
     Route: 058
  7. ATACAND [Concomitant]
     Dates: start: 20020608, end: 20120714
  8. LANTUS [Suspect]
     Route: 058
  9. INSULIN LISPRO [Suspect]
     Route: 058
     Dates: start: 20120307, end: 20120713
  10. LESCOL XL [Concomitant]
     Dates: start: 20060920, end: 20120714

REACTIONS (1)
  - CEREBRAL HAEMORRHAGE [None]
